FAERS Safety Report 19275473 (Version 1)
Quarter: 2021Q2

REPORT INFORMATION
  Report Type: Spontaneous
  Country: ES (occurrence: ES)
  Receive Date: 20210519
  Receipt Date: 20210519
  Transmission Date: 20210717
  Serious: Yes (Other)
  Sender: FDA-Public Use
  Company Number: ES-JNJFOC-20210515760

PATIENT
  Age: 38 Year
  Sex: Female

DRUGS (1)
  1. VELETRI [Suspect]
     Active Substance: EPOPROSTENOL
     Indication: PULMONARY ARTERIAL HYPERTENSION
     Dosage: 18 NG/KG/MIN
     Route: 042

REACTIONS (5)
  - Atrial tachycardia [Unknown]
  - Hyperthyroidism [Unknown]
  - Product use in unapproved indication [Unknown]
  - Off label use [Unknown]
  - Hepatotoxicity [Unknown]
